FAERS Safety Report 8006770-8 (Version None)
Quarter: 2011Q4

REPORT INFORMATION
  Report Type: 
  Country: None (occurrence: None)
  Receive Date: 20111227
  Receipt Date: 20111215
  Transmission Date: 20120403
  Serious: Yes (Other)
  Sender: FDA-Public Use
  Company Number: US-BAYER-2011-044833

PATIENT
  Age: 26 Year
  Sex: Female
  Weight: 108.84 kg

DRUGS (15)
  1. YAZ [Suspect]
     Indication: ACNE
     Dosage: UNK
     Dates: start: 20090601, end: 20090801
  2. CLARITIN [Concomitant]
     Dosage: 10 MG, PRN
     Route: 048
  3. YASMIN [Suspect]
     Indication: ACNE
     Dosage: UNK
     Dates: start: 20080301, end: 20080601
  4. XYZAL [Concomitant]
  5. ZANTAC [Concomitant]
  6. DROSPIRENONE AND ETHINYL ESTRADIOL [Suspect]
     Indication: ACNE
     Dosage: UNK
     Dates: start: 20090201, end: 20090701
  7. FAMOTIDINE [Concomitant]
  8. NASONEX [Concomitant]
     Dosage: 50 MCG/24HR, QD
     Route: 045
  9. MOBIC [Concomitant]
     Dosage: 7.5 TO 15 MG DAILY
     Route: 048
  10. GLUCOSAMINE [Concomitant]
     Dosage: UNK UNK, QD
     Route: 048
  11. GLUCOSAMINE [Concomitant]
  12. DICYCLOMINE [Concomitant]
  13. XYZAL [Concomitant]
     Dosage: 5 MG, QD
  14. TUM [Concomitant]
  15. PRILOSEC [Concomitant]

REACTIONS (8)
  - MUSCLE SPASMS [None]
  - DIARRHOEA [None]
  - VOMITING [None]
  - CHOLECYSTITIS [None]
  - ABDOMINAL ADHESIONS [None]
  - BILIARY DYSKINESIA [None]
  - ABDOMINAL PAIN [None]
  - BILE DUCT OBSTRUCTION [None]
